FAERS Safety Report 18987835 (Version 3)
Quarter: 2021Q4

REPORT INFORMATION
  Report Type: Report from Study
  Country: US (occurrence: US)
  Receive Date: 20210309
  Receipt Date: 20211018
  Transmission Date: 20220303
  Serious: No
  Sender: FDA-Public Use
  Company Number: NVSC2021US054209

PATIENT
  Age: 81 Year
  Sex: Male

DRUGS (2)
  1. ENTRESTO [Suspect]
     Active Substance: SACUBITRIL\VALSARTAN
     Indication: Product used for unknown indication
     Dosage: 50 MG, BID (24/26)
     Route: 048
     Dates: start: 202010
  2. GABAPENTIN [Suspect]
     Active Substance: GABAPENTIN
     Indication: Burning feet syndrome
     Route: 065
     Dates: start: 202109

REACTIONS (7)
  - Asthenia [Unknown]
  - Malaise [Unknown]
  - Hypotonia [Unknown]
  - Depression [Unknown]
  - Increased appetite [Unknown]
  - Weight increased [Unknown]
  - Abdominal distension [Unknown]

NARRATIVE: CASE EVENT DATE: 20210305
